FAERS Safety Report 7362390-X (Version None)
Quarter: 2011Q1

REPORT INFORMATION
  Report Type: 
  Country: None (occurrence: None)
  Receive Date: 20110318
  Receipt Date: 20110309
  Transmission Date: 20110831
  Serious: Yes (Disabling)
  Sender: FDA-Public Use
  Company Number: RU-ASTRAZENECA-2011SE13694

PATIENT
  Sex: Male

DRUGS (1)
  1. MARCAINE [Suspect]
     Route: 053

REACTIONS (1)
  - MUSCLE ATROPHY [None]
